FAERS Safety Report 16339828 (Version 5)
Quarter: 2019Q4

REPORT INFORMATION
  Report Type: Report from Study
  Country: US (occurrence: US)
  Receive Date: 20190521
  Receipt Date: 20191023
  Transmission Date: 20200122
  Serious: Yes (Hospitalization, Other)
  Sender: FDA-Public Use
  Company Number: PHEH2019US021336

PATIENT
  Sex: Male

DRUGS (1)
  1. ENTRESTO [Suspect]
     Active Substance: SACUBITRIL\VALSARTAN
     Indication: PRODUCT USED FOR UNKNOWN INDICATION
     Dosage: UNK
     Route: 048

REACTIONS (8)
  - Fatigue [Unknown]
  - Fluid retention [Not Recovered/Not Resolved]
  - Muscle twitching [Unknown]
  - Drug ineffective [Unknown]
  - Oedema [Unknown]
  - Cerebral palsy [Unknown]
  - Weight increased [Unknown]
  - Gait disturbance [Unknown]
